FAERS Safety Report 4423275-1 (Version None)
Quarter: 2004Q3

REPORT INFORMATION
  Report Type: 
  Country: None (occurrence: None)
  Receive Date: 20040810
  Receipt Date: 20040810
  Transmission Date: 20050211
  Serious: No
  Sender: FDA-Public Use
  Company Number: None

PATIENT
  Sex: Female
  Weight: 14.9687 kg

DRUGS (6)
  1. NIX [Suspect]
     Indication: LICE INFESTATION
     Dosage: NIX USED. FAILED. USED OILS EVERY OTHER DAY TIL DAY 10 THEN RID MOUSSE. STILL UING ILS AND
     Dates: start: 20040518, end: 20040621
  2. NIX [Suspect]
     Indication: PRURITUS
     Dosage: NIX USED. FAILED. USED OILS EVERY OTHER DAY TIL DAY 10 THEN RID MOUSSE. STILL UING ILS AND
     Dates: start: 20040518, end: 20040621
  3. RID MOUSSE [Suspect]
  4. MAYO [Suspect]
  5. LOVIE OIL [Suspect]
  6. COCONUT SHAMPOOS [Concomitant]

REACTIONS (7)
  - APPLICATION SITE ERYTHEMA [None]
  - APPLICATION SITE IRRITATION [None]
  - APPLICATION SITE REACTION [None]
  - CAUSTIC INJURY [None]
  - DERMATITIS EXFOLIATIVE [None]
  - DRUG INEFFECTIVE [None]
  - SCAB [None]
